FAERS Safety Report 19755836 (Version 1)
Quarter: 2021Q3

REPORT INFORMATION
  Report Type: Spontaneous
  Country: SE (occurrence: SE)
  Receive Date: 20210827
  Receipt Date: 20210827
  Transmission Date: 20211014
  Serious: Yes (Life-Threatening, Hospitalization, Disabling)
  Sender: FDA-Public Use
  Company Number: SE-PFIZER INC-202101072856

PATIENT
  Sex: Female
  Weight: 58 kg

DRUGS (7)
  1. GABAPENTIN. [Suspect]
     Active Substance: GABAPENTIN
     Route: 048
     Dates: start: 20150706
  2. BOTOX [Suspect]
     Active Substance: ONABOTULINUMTOXINA
     Route: 003
     Dates: start: 20150123, end: 20150318
  3. PARAFLEX [Suspect]
     Active Substance: CHLORZOXAZONE
     Dosage: UNK, THREE TIMES A DAY
     Dates: start: 20140619
  4. LEDERSPAN [Suspect]
     Active Substance: TRIAMCINOLONE HEXACETONIDE
     Route: 030
     Dates: start: 20140606, end: 20160525
  5. NEOVLETTA [Suspect]
     Active Substance: ETHINYL ESTRADIOL\LEVONORGESTREL
     Dates: start: 20140723, end: 20140919
  6. ALVEDON [Suspect]
     Active Substance: ACETAMINOPHEN
     Route: 048
     Dates: start: 20150313, end: 20150424
  7. STESOLID [Concomitant]
     Active Substance: DIAZEPAM
     Dates: start: 20140731

REACTIONS (4)
  - Limb discomfort [Recovered/Resolved]
  - Infection [Recovered/Resolved with Sequelae]
  - Peripheral swelling [Recovered/Resolved with Sequelae]
  - Off label use [Recovered/Resolved with Sequelae]
